FAERS Safety Report 11119353 (Version 1)
Quarter: 2015Q2

REPORT INFORMATION
  Report Type: Spontaneous
  Country: US (occurrence: None)
  Receive Date: 20150515
  Receipt Date: 20150515
  Transmission Date: 20150821
  Serious: No
  Sender: FDA-Public Use
  Company Number: None

PATIENT
  Age: 76 Year
  Sex: Male
  Weight: 110.68 kg

DRUGS (1)
  1. PRAMIPEXOLE [Suspect]
     Active Substance: PRAMIPEXOLE
     Indication: RESTLESS LEGS SYNDROME
     Dosage: 2 TABLETS, QHS/BEDTIME ORAL
     Route: 048
     Dates: start: 20150429, end: 20150514

REACTIONS (4)
  - Drug effect decreased [None]
  - Condition aggravated [None]
  - Product substitution issue [None]
  - Restless legs syndrome [None]

NARRATIVE: CASE EVENT DATE: 20150429
